FAERS Safety Report 8307645-7 (Version None)
Quarter: 2012Q2

REPORT INFORMATION
  Report Type: 
  Country: None (occurrence: None)
  Receive Date: 20120424
  Receipt Date: 20120424
  Transmission Date: 20120825
  Serious: Yes (Disabling, Other)
  Sender: FDA-Public Use
  Company Number: None

PATIENT
  Age: 57 Year
  Sex: Female
  Weight: 62.595 kg

DRUGS (1)
  1. ACTONEL [Suspect]
     Indication: OSTEOPENIA
     Dosage: 35MG
     Route: 048
     Dates: start: 20120328, end: 20120418

REACTIONS (8)
  - WEIGHT BEARING DIFFICULTY [None]
  - PAIN [None]
  - FATIGUE [None]
  - FEELING ABNORMAL [None]
  - INFLUENZA LIKE ILLNESS [None]
  - ARTHRALGIA [None]
  - GROIN PAIN [None]
  - LOSS OF CONSCIOUSNESS [None]
